FAERS Safety Report 6059326-0 (Version None)
Quarter: 2009Q1

REPORT INFORMATION
  Report Type: 
  Country: None (occurrence: None)
  Receive Date: 20090130
  Receipt Date: 20090115
  Transmission Date: 20090719
  Serious: Yes (Other)
  Sender: FDA-Public Use
  Company Number: CH-GENENTECH-275907

PATIENT
  Sex: Male

DRUGS (6)
  1. BEVACIZUMAB [Suspect]
     Indication: COLORECTAL CANCER
     Dosage: 7.5 MG/KG, DAYS 1+15
     Route: 042
     Dates: start: 20080717
  2. CETUXIMAB [Suspect]
     Indication: COLORECTAL CANCER
     Dosage: 400 MG/M2, DAY 1
     Route: 042
     Dates: start: 20080717
  3. LEUCOVORIN [Suspect]
     Indication: COLORECTAL CANCER
     Dosage: 30 MG, DAYS1,8,15, 22
     Route: 042
     Dates: start: 20080717
  4. OXALIPLATIN [Suspect]
     Indication: COLORECTAL CANCER
     Dosage: 70 MG/M2, DAYS 1+15
     Route: 042
     Dates: start: 20080717
  5. IRINOTECAN HCL [Suspect]
     Indication: COLORECTAL CANCER
     Dosage: 100 MG/M2, UNK
     Route: 042
     Dates: start: 20080724
  6. FLUOROURACIL [Suspect]
     Indication: COLORECTAL CANCER
     Dosage: 1500 MG/M2, UNK
     Route: 042
     Dates: start: 20080717

REACTIONS (4)
  - BLADDER PAIN [None]
  - GASTROINTESTINAL PERFORATION [None]
  - INFECTION [None]
  - PLEURAL EFFUSION [None]
